FAERS Safety Report 22918376 (Version 2)
Quarter: 2025Q4

REPORT INFORMATION
  Report Type: Other
  Country: US (occurrence: US)
  Receive Date: 20230907
  Receipt Date: 20251230
  Transmission Date: 20260118
  Serious: No
  Sender: TRAVERE THERAPEUTICS
  Company Number: US-TRAVERE-2023TVT00281

PATIENT
  Sex: Female

DRUGS (3)
  1. FILSPARI [Suspect]
     Active Substance: SPARSENTAN
     Indication: Proteinuria
     Dosage: TAKE 1 TABLET ONCE DAILY ON DAYS 1 THROUGH 14, THEN TAKE 2 TABLETS ONCE DAILY ON DAYS 15 THROUGH 30.
     Route: 048
     Dates: start: 20230607
  2. FILSPARI [Suspect]
     Active Substance: SPARSENTAN
     Indication: IgA nephropathy
     Route: 048
  3. TYLENOL [Concomitant]
     Active Substance: ACETAMINOPHEN

REACTIONS (4)
  - Nausea [Not Recovered/Not Resolved]
  - Tooth abscess [Not Recovered/Not Resolved]
  - Tooth extraction [Not Recovered/Not Resolved]
  - Illness [Unknown]
